FAERS Safety Report 4550323-0 (Version None)
Quarter: 2004Q4

REPORT INFORMATION
  Report Type: 
  Country: None (occurrence: None)
  Receive Date: 20041217
  Receipt Date: 20040819
  Transmission Date: 20050328
  Serious: No
  Sender: FDA-Public Use
  Company Number: 2004-BP-05796BP

PATIENT
  Age: 68 Year
  Sex: Male

DRUGS (12)
  1. SPIRIVA [Suspect]
     Indication: CHRONIC OBSTRUCTIVE AIRWAYS DISEASE
     Dosage: 18 MCG (18 MCG) IH
     Route: 055
     Dates: end: 20040708
  2. FLOVENT [Concomitant]
  3. COMBIVENT [Concomitant]
  4. BEXTRA [Concomitant]
  5. LORCET-HD [Concomitant]
  6. DURAGESIC [Concomitant]
  7. ASPIRIN [Concomitant]
  8. MAGNESIUM SULFATE [Concomitant]
  9. FLEXERIL [Concomitant]
  10. UNITHROID (LEVOTHYROXINE SODIUM) [Concomitant]
  11. LOTREL [Concomitant]
  12. PROTONIX [Concomitant]

REACTIONS (1)
  - EPISTAXIS [None]
